FAERS Safety Report 9244991 (Version 1)
Quarter: 2013Q2

REPORT INFORMATION
  Report Type: Spontaneous
  Country: US (occurrence: US)
  Receive Date: 20130422
  Receipt Date: 20130422
  Transmission Date: 20140414
  Serious: Yes (Hospitalization)
  Sender: FDA-Public Use
  Company Number: US-AMGEN-USASP2013027183

PATIENT
  Sex: 0

DRUGS (2)
  1. PROLIA [Suspect]
     Indication: PRODUCT USED FOR UNKNOWN INDICATION
     Dates: start: 20130313
  2. LAMISIL                            /00992601/ [Concomitant]
     Dosage: UNK

REACTIONS (2)
  - Urticaria [Unknown]
  - Arthralgia [Unknown]
